FAERS Safety Report 5419754-0 (Version None)
Quarter: 2007Q3

REPORT INFORMATION
  Report Type: 
  Country: None (occurrence: None)
  Receive Date: 20070815
  Receipt Date: 20070802
  Transmission Date: 20080115
  Serious: Yes (Death)
  Sender: FDA-Public Use
  Company Number: 20074007

PATIENT
  Age: 22 Year
  Sex: Male

DRUGS (1)
  1. LIORESAL [Suspect]
     Indication: MUSCLE SPASTICITY
     Dosage: 150 MCG, DAILY, INTRATHECAL
     Route: 037

REACTIONS (7)
  - AUTONOMIC NERVOUS SYSTEM IMBALANCE [None]
  - BRAIN DEATH [None]
  - BRAIN OEDEMA [None]
  - CATHETER RELATED COMPLICATION [None]
  - CRANIOPLASTY [None]
  - DEVICE FAILURE [None]
  - TRACHEOSTOMY TUBE REMOVAL [None]
